FAERS Safety Report 7961117-8 (Version None)
Quarter: 2011Q4

REPORT INFORMATION
  Report Type: 
  Country: None (occurrence: None)
  Receive Date: 20111202
  Receipt Date: 20111121
  Transmission Date: 20120403
  Serious: Yes (Disabling)
  Sender: FDA-Public Use
  Company Number: 2011MA016779

PATIENT
  Age: 24 Year
  Sex: Female

DRUGS (4)
  1. BEVACIZUMAB [Suspect]
     Indication: GLIOBLASTOMA MULTIFORME
     Dosage: ;4 CYCLES;UNK
  2. BEVACIZUMAB [Suspect]
     Indication: RECURRENT CANCER
     Dosage: ;4 CYCLES;UNK
  3. IRINOTECAN HCL [Suspect]
     Indication: GLIOBLASTOMA MULTIFORME
     Dosage: ;4 CYCLES;UNK
  4. IRINOTECAN HCL [Suspect]
     Indication: RECURRENT CANCER
     Dosage: ;4 CYCLES;UNK

REACTIONS (2)
  - OPTIC NEUROPATHY [None]
  - BLINDNESS TRANSIENT [None]
